FAERS Safety Report 8204385-X (Version None)
Quarter: 2012Q1

REPORT INFORMATION
  Report Type: 
  Country: None (occurrence: None)
  Receive Date: 20120313
  Receipt Date: 20120313
  Transmission Date: 20120608
  Serious: Yes (Other)
  Sender: FDA-Public Use
  Company Number: None

PATIENT
  Age: 51 Year
  Sex: Female

DRUGS (1)
  1. COPAXONE [Suspect]
     Indication: MULTIPLE SCLEROSIS
     Dosage: 20.0 MG
     Route: 058
     Dates: start: 20111110, end: 20120301

REACTIONS (3)
  - LOCAL SWELLING [None]
  - BACK PAIN [None]
  - DRUG HYPERSENSITIVITY [None]
